FAERS Safety Report 21954943 (Version 4)
Quarter: 2023Q1

REPORT INFORMATION
  Report Type: Report from Study
  Country: CO (occurrence: CO)
  Receive Date: 20230206
  Receipt Date: 20230327
  Transmission Date: 20230417
  Serious: Yes (Death, Hospitalization)
  Sender: FDA-Public Use
  Company Number: CO-JNJFOC-20230148626

PATIENT
  Age: 76 Year
  Sex: Male
  Weight: 67 kg

DRUGS (4)
  1. IMBRUVICA [Suspect]
     Active Substance: IBRUTINIB
     Indication: Chronic lymphocytic leukaemia
     Dosage: ONE DAY ON AND ONE DAY OFF
     Route: 048
     Dates: start: 20201230, end: 20230315
  2. IMBRUVICA [Suspect]
     Active Substance: IBRUTINIB
     Indication: Chronic lymphocytic leukaemia
     Route: 048
  3. ATORVASTATIN [Concomitant]
     Active Substance: ATORVASTATIN
     Indication: Product used for unknown indication
  4. LOSARTAN [Concomitant]
     Active Substance: LOSARTAN
     Indication: Hypertension

REACTIONS (14)
  - Diarrhoea [Fatal]
  - Illness [Fatal]
  - Discouragement [Fatal]
  - Pallor [Fatal]
  - Product availability issue [Unknown]
  - Fluid retention [Fatal]
  - Depressed mood [Unknown]
  - Foot fracture [Fatal]
  - Off label use [Unknown]
  - Inflammation [Fatal]
  - Hemiplegia [Fatal]
  - Blood glucose increased [Fatal]
  - Hypotension [Fatal]
  - Vomiting [Fatal]

NARRATIVE: CASE EVENT DATE: 20230101
